FAERS Safety Report 21503652 (Version 1)
Quarter: 2022Q4

REPORT INFORMATION
  Report Type: Report from Study
  Country: US (occurrence: US)
  Receive Date: 20221025
  Receipt Date: 20221025
  Transmission Date: 20230112
  Serious: No
  Sender: FDA-Public Use
  Company Number: US-NOVARTISTESTPH-NVSC2022US238383

PATIENT
  Sex: Female

DRUGS (1)
  1. COSENTYX [Suspect]
     Active Substance: SECUKINUMAB
     Indication: Psoriasis
     Dosage: 150 MG, QMO
     Route: 058
     Dates: start: 20220907

REACTIONS (5)
  - SARS-CoV-2 test positive [Unknown]
  - Headache [Unknown]
  - Cough [Unknown]
  - Chest discomfort [Unknown]
  - Skin infection [Recovering/Resolving]
